FAERS Safety Report 4877893-7 (Version None)
Quarter: 2006Q1

REPORT INFORMATION
  Report Type: 
  Country: None (occurrence: None)
  Receive Date: 20060109
  Receipt Date: 20051227
  Transmission Date: 20060701
  Serious: Yes (Hospitalization)
  Sender: FDA-Public Use
  Company Number: WAES 0512USA03739

PATIENT
  Age: 77 Year
  Sex: Male
  Weight: 78.0187 kg

DRUGS (17)
  1. PRINIVIL [Suspect]
     Dosage: PO
     Route: 048
     Dates: start: 20030108, end: 20050908
  2. PLACEBO(UNSPECIFIED) [Suspect]
     Indication: BENIGN PROSTATIC HYPERPLASIA
     Dosage: DAILY/PO
     Route: 048
     Dates: start: 20050906, end: 20050908
  3. ZETIA [Suspect]
     Dosage: 10 MG/DAILY/PO
     Route: 048
     Dates: start: 20030829, end: 20050909
  4. DEPAKOTE [Concomitant]
  5. VIAGRA [Concomitant]
  6. ZOCOR [Concomitant]
  7. AMIODARONE HCL [Concomitant]
  8. ATENOLOL [Concomitant]
  9. CALCIUM (+) MAGNES? [Concomitant]
  10. DIVALPROEX SODIUM [Concomitant]
  11. FUROSEMIDE [Concomitant]
  12. GLUCOSAMINE [Concomitant]
  13. IRON [Concomitant]
  14. LEVOTHYROXINE SODIUM [Concomitant]
  15. MAGNESIUM [Concomitant]
  16. POTASSIUM CHLORIDE [Concomitant]
  17. VITAMIN B COMPLEX CAP [Concomitant]

REACTIONS (15)
  - ABASIA [None]
  - DIZZINESS [None]
  - FALL [None]
  - GROIN PAIN [None]
  - HAEMATURIA [None]
  - HEAD INJURY [None]
  - HYPERLIPIDAEMIA [None]
  - HYPERTONIC BLADDER [None]
  - HYPOTENSION [None]
  - JOINT INJURY [None]
  - MUSCLE HAEMORRHAGE [None]
  - NECK PAIN [None]
  - NEUROPATHY PERIPHERAL [None]
  - SOFT TISSUE INJURY [None]
  - SYNCOPE [None]
